FAERS Safety Report 14728822 (Version 1)
Quarter: 2018Q2

REPORT INFORMATION
  Report Type: Spontaneous
  Country: US (occurrence: US)
  Receive Date: 20180402
  Receipt Date: 20180402
  Transmission Date: 20180711
  Serious: Yes (Disabling)
  Sender: FDA-Public Use
  Company Number: None

PATIENT
  Age: 30 Year
  Sex: Female
  Weight: 85.5 kg

DRUGS (1)
  1. TRULICITY [Suspect]
     Active Substance: DULAGLUTIDE
     Dosage: ?          QUANTITY:4 INJECTION(S);OTHER FREQUENCY:1 A WEEK;?
     Route: 058
     Dates: start: 20170602, end: 20171101

REACTIONS (1)
  - Autoimmune thyroiditis [None]

NARRATIVE: CASE EVENT DATE: 20170901
